FAERS Safety Report 5795967-3 (Version None)
Quarter: 2008Q3

REPORT INFORMATION
  Report Type: 
  Country: None (occurrence: None)
  Receive Date: 20080701
  Receipt Date: 20080626
  Transmission Date: 20090109
  Serious: Yes (Hospitalization, Other)
  Sender: FDA-Public Use
  Company Number: US-RANBAXY-2008US-16102

PATIENT

DRUGS (1)
  1. MINOCYCLINE HYDROCHLORIDE [Suspect]
     Indication: ACNE
     Dosage: UNK, UNK
     Route: 048

REACTIONS (9)
  - ABDOMINAL PAIN [None]
  - ANGIOEDEMA [None]
  - DYSPEPSIA [None]
  - DYSPNOEA [None]
  - HAEMATURIA [None]
  - PYREXIA [None]
  - SERUM SICKNESS [None]
  - TACHYCARDIA [None]
  - URTICARIA [None]
